FAERS Safety Report 8560724-1 (Version None)
Quarter: 2012Q3

REPORT INFORMATION
  Report Type: 
  Country: None (occurrence: None)
  Receive Date: 20120802
  Receipt Date: 20120730
  Transmission Date: 20120928
  Serious: Yes (Other)
  Sender: FDA-Public Use
  Company Number: PHHY2012HU042758

PATIENT
  Sex: Male

DRUGS (1)
  1. ZOLEDRONOC ACID [Suspect]
     Dosage: 4 MG, QMO
     Dates: start: 20090518

REACTIONS (4)
  - GINGIVAL INFECTION [None]
  - PAIN [None]
  - OSTEONECROSIS OF JAW [None]
  - APHAGIA [None]
